FAERS Safety Report 17835324 (Version 1)
Quarter: 2020Q2

REPORT INFORMATION
  Report Type: Spontaneous
  Country: US (occurrence: US)
  Receive Date: 20200528
  Receipt Date: 20200528
  Transmission Date: 20200714
  Serious: Yes (Hospitalization, Disabling, Other)
  Sender: FDA-Public Use
  Company Number: US-SA-2020SA134554

PATIENT

DRUGS (1)
  1. RANITIDINE HYDROCHLORIDE. [Suspect]
     Active Substance: RANITIDINE HYDROCHLORIDE
     Dosage: UNK
     Dates: start: 2010, end: 2019

REACTIONS (12)
  - Surgery [Unknown]
  - Injury [Not Recovered/Not Resolved]
  - Pain [Not Recovered/Not Resolved]
  - Physical disability [Not Recovered/Not Resolved]
  - Decreased interest [Not Recovered/Not Resolved]
  - Neoplasm malignant [Unknown]
  - Emotional distress [Not Recovered/Not Resolved]
  - Renal cancer [Unknown]
  - Carcinogenicity [Unknown]
  - Hospitalisation [Unknown]
  - Anxiety [Unknown]
  - Unevaluable event [Unknown]
